FAERS Safety Report 5107248-1 (Version None)
Quarter: 2006Q3

REPORT INFORMATION
  Report Type: 
  Country: None (occurrence: None)
  Receive Date: 20060914
  Receipt Date: 20060911
  Transmission Date: 20061208
  Serious: Yes (Other)
  Sender: FDA-Public Use
  Company Number: US-2006-024145

PATIENT
  Age: 27 Year
  Sex: Female
  Weight: 77 kg

DRUGS (4)
  1. MAGNEVIST [Suspect]
     Indication: ANGIOGRAM
     Dosage: 30 ML, 1 DOSE
     Dates: start: 20060816, end: 20060816
  2. PROVIGIL [Concomitant]
  3. ZOLOFT [Concomitant]
  4. MULTIVITAMINS (PANTHENOL, RETINOL) [Concomitant]

REACTIONS (5)
  - INJECTION SITE EXTRAVASATION [None]
  - MOVEMENT DISORDER [None]
  - MUSCULOSKELETAL STIFFNESS [None]
  - OEDEMA PERIPHERAL [None]
  - PAIN IN EXTREMITY [None]
